FAERS Safety Report 25276382 (Version 1)
Quarter: 2025Q2

REPORT INFORMATION
  Report Type: Spontaneous
  Country: TR (occurrence: TR)
  Receive Date: 20250507
  Receipt Date: 20250507
  Transmission Date: 20250716
  Serious: Yes (Other)
  Sender: AMGEN
  Company Number: TR-AMGEN-TURSP2025086117

PATIENT

DRUGS (1)
  1. ADALIMUMAB [Suspect]
     Active Substance: ADALIMUMAB
     Indication: Immunosuppressant drug therapy
     Route: 065

REACTIONS (8)
  - Deep vein thrombosis [Unknown]
  - Pneumonia [Unknown]
  - Splenic vein thrombosis [Unknown]
  - Superficial vein thrombosis [Unknown]
  - Cellulitis [Unknown]
  - Phlebitis [Unknown]
  - Erythema nodosum [Unknown]
  - Off label use [Unknown]
